FAERS Safety Report 21606216 (Version 1)
Quarter: 2022Q4

REPORT INFORMATION
  Report Type: Other
  Country: GB (occurrence: None)
  Receive Date: 20221117
  Receipt Date: 20221117
  Transmission Date: 20230112
  Serious: Yes (Death)
  Sender: FDA-Public Use
  Company Number: GB-ROCHE-3016684

PATIENT
  Sex: Male

DRUGS (1)
  1. ESBRIET [Suspect]
     Active Substance: PIRFENIDONE
     Indication: Idiopathic pulmonary fibrosis
     Dosage: 3 PER DAY
     Route: 065
     Dates: start: 201802

REACTIONS (4)
  - Malaise [Unknown]
  - Bedridden [Unknown]
  - Nausea [Unknown]
  - Death [Fatal]
